FAERS Safety Report 14828850 (Version 1)
Quarter: 2018Q2

REPORT INFORMATION
  Report Type: Spontaneous
  Country: US (occurrence: US)
  Receive Date: 20180430
  Receipt Date: 20180430
  Transmission Date: 20180711
  Serious: Yes (Hospitalization)
  Sender: FDA-Public Use
  Company Number: US-PFIZER INC-2016362732

PATIENT
  Age: 59 Year
  Sex: Male
  Weight: 90.72 kg

DRUGS (1)
  1. RAPAMUNE [Suspect]
     Active Substance: SIROLIMUS
     Indication: RENAL TRANSPLANT
     Dosage: 1 MG, 1X/DAY
     Route: 048
     Dates: start: 2011

REACTIONS (4)
  - Herpes zoster [Recovered/Resolved]
  - Rhinorrhoea [Unknown]
  - Influenza [Recovered/Resolved]
  - Hypoaesthesia [Unknown]

NARRATIVE: CASE EVENT DATE: 201312
